FAERS Safety Report 6355558-2 (Version None)
Quarter: 2009Q3

REPORT INFORMATION
  Report Type: 
  Country: None (occurrence: None)
  Receive Date: 20090910
  Receipt Date: 20090901
  Transmission Date: 20100115
  Serious: No
  Sender: FDA-Public Use
  Company Number: 20097187

PATIENT
  Age: 60 Year
  Sex: Female

DRUGS (1)
  1. LIORESAL [Suspect]
     Indication: MUSCLE SPASTICITY
     Dosage: 96 MCG, DAILY, INTRATHECAL
     Route: 037

REACTIONS (6)
  - DEVICE MIGRATION [None]
  - DISCOMFORT [None]
  - IMPLANT SITE DISCHARGE [None]
  - IMPLANT SITE EROSION [None]
  - INFECTION [None]
  - WEIGHT DECREASED [None]
